FAERS Safety Report 23210277 (Version 1)
Quarter: 2023Q4

REPORT INFORMATION
  Report Type: Spontaneous
  Country: US (occurrence: US)
  Receive Date: 20231121
  Receipt Date: 20231121
  Transmission Date: 20240109
  Serious: No
  Sender: FDA-Public Use
  Company Number: US-ASTELLAS-2023US029050

PATIENT
  Age: 60 Year
  Sex: Female

DRUGS (5)
  1. VEOZAH [Suspect]
     Active Substance: FEZOLINETANT
     Indication: Postural orthostatic tachycardia syndrome
     Dosage: 45 MG, ONCE DAILY (IN THE EVENING)
     Route: 065
     Dates: start: 20230925
  2. VEOZAH [Suspect]
     Active Substance: FEZOLINETANT
     Indication: Hot flush
  3. METOPROLOL [Concomitant]
     Active Substance: METOPROLOL
     Indication: Product used for unknown indication
     Dosage: UNK UNK, UNKNOWN FREQ.
     Route: 065
  4. PLAQUENIL [Concomitant]
     Active Substance: HYDROXYCHLOROQUINE SULFATE
     Indication: Product used for unknown indication
     Dosage: UNK UNK, UNKNOWN FREQ.
     Route: 065
  5. IRON [Concomitant]
     Active Substance: IRON
     Indication: Product used for unknown indication
     Dosage: UNK UNK, UNKNOWN FREQ.
     Route: 065

REACTIONS (2)
  - Hyperhidrosis [Unknown]
  - Off label use [Unknown]

NARRATIVE: CASE EVENT DATE: 20230925
